FAERS Safety Report 7976311 (Version 5)
Quarter: 2013Q1

REPORT INFORMATION
  Report Type: Spontaneous
  Country: US (occurrence: US)
  Receive Date: 20110606
  Receipt Date: 20130117
  Transmission Date: 20140127
  Serious: Yes (Hospitalization)
  Sender: FDA-Public Use
  Company Number: US-ASTRAZENECA-2010SE54623

PATIENT
  Age: 86 Year
  Sex: Female

DRUGS (1)
  1. SYMBICORT PMDI [Suspect]
     Dosage: 160/4.5 MCG 1 PUFF BID
     Route: 055

REACTIONS (8)
  - Cardiac disorder [Unknown]
  - Ear infection [Unknown]
  - Malaise [Unknown]
  - Ear disorder [Unknown]
  - Nasopharyngitis [Unknown]
  - Influenza [Unknown]
  - Confusional state [Unknown]
  - Malaise [Unknown]
